FAERS Safety Report 24393862 (Version 1)
Quarter: 2024Q4

REPORT INFORMATION
  Report Type: Spontaneous
  Country: PT (occurrence: PT)
  Receive Date: 20241003
  Receipt Date: 20241003
  Transmission Date: 20250115
  Serious: Yes (Other)
  Sender: MERCK
  Company Number: PT-009507513-2410PRT000321

PATIENT
  Age: 45 Year

DRUGS (1)
  1. PEMBROLIZUMAB [Suspect]
     Active Substance: PEMBROLIZUMAB
     Indication: Triple negative breast cancer

REACTIONS (10)
  - Breast conserving surgery [Unknown]
  - Hypophysitis [Unknown]
  - Asthenia [Unknown]
  - Hypotension [Unknown]
  - Nausea [Unknown]
  - Vomiting [Unknown]
  - Cortisol abnormal [Unknown]
  - Blood corticotrophin abnormal [Unknown]
  - Blood prolactin abnormal [Unknown]
  - Therapy cessation [Unknown]
